FAERS Safety Report 5343334-9 (Version None)
Quarter: 2007Q2

REPORT INFORMATION
  Report Type: 
  Country: None (occurrence: None)
  Receive Date: 20070503
  Receipt Date: 20061031
  Transmission Date: 20071010
  Serious: Yes (Hospitalization)
  Sender: FDA-Public Use
  Company Number: US200609002458

PATIENT
  Age: 15 Year
  Sex: Female

DRUGS (4)
  1. HUMATROPE [Suspect]
     Indication: GROWTH HORMONE DEFICIENCY
     Dosage: 2.8 MG, 6/W
     Dates: start: 19930101, end: 20060907
  2. LEVOTHYROXINE SODIUM [Concomitant]
  3. CORTEF [Concomitant]
  4. PREMARIN [Concomitant]

REACTIONS (2)
  - CHOLELITHIASIS [None]
  - PANCREATITIS ACUTE [None]
